FAERS Safety Report 23694169 (Version 1)
Quarter: 2024Q2

REPORT INFORMATION
  Report Type: Spontaneous
  Country: US (occurrence: US)
  Receive Date: 20240401
  Receipt Date: 20240401
  Transmission Date: 20240715
  Serious: No
  Sender: FDA-Public Use
  Company Number: US-GALDERMA-US2024003870

PATIENT

DRUGS (8)
  1. PROACTIV MD ADAPALENE ACNE TREATMENT [Suspect]
     Active Substance: ADAPALENE
     Indication: Scar
     Dosage: 1 DOSAGE FORM
     Route: 061
     Dates: start: 2024, end: 202402
  2. Proactiv MD Ultra Gentle Cleanser [Concomitant]
     Indication: Scar
     Dosage: 1 DOSAGE FORM, QD
     Route: 061
     Dates: start: 2024, end: 202402
  3. Proactiv MD Ultra Hydrating Moisturizer [Concomitant]
     Indication: Scar
     Dosage: 1 DOSAGE FORM, QD
     Route: 061
     Dates: start: 2024, end: 202402
  4. COSMETICS [Concomitant]
     Active Substance: COSMETICS
     Indication: Scar
     Dosage: 1 DOSAGE FORM, QD
     Dates: start: 2024, end: 202402
  5. COSMETICS [Concomitant]
     Active Substance: COSMETICS
     Indication: Scar
     Dosage: 1 DOSAGE FORM, QD
     Route: 061
     Dates: start: 2024, end: 202402
  6. PROACTIV EMERGENCY BLEMISH RELIEF [Concomitant]
     Active Substance: BENZOYL PEROXIDE
     Indication: Scar
     Dosage: 1 DOSAGE FORM, QD
     Route: 061
     Dates: start: 2024, end: 202402
  7. Proactiv Zits Happen Patches [Concomitant]
     Indication: Scar
     Dosage: 1 DOSAGE FORM, QD
     Route: 061
     Dates: start: 2024, end: 202402
  8. MELATONIN [Concomitant]
     Active Substance: MELATONIN
     Indication: Product used for unknown indication

REACTIONS (7)
  - Skin irritation [Recovering/Resolving]
  - Skin burning sensation [Recovering/Resolving]
  - Dry skin [Recovering/Resolving]
  - Erythema [Recovering/Resolving]
  - Pain of skin [Recovering/Resolving]
  - Acne [Recovering/Resolving]
  - Product use in unapproved indication [Recovered/Resolved]

NARRATIVE: CASE EVENT DATE: 20240101
